FAERS Safety Report 9364758 (Version 1)
Quarter: 2013Q2

REPORT INFORMATION
  Report Type: Spontaneous
  Country: DE (occurrence: DE)
  Receive Date: 20130624
  Receipt Date: 20130624
  Transmission Date: 20140414
  Serious: Yes (Congenital Anomaly, Other)
  Sender: FDA-Public Use
  Company Number: DE-UCBSA-089250

PATIENT
  Age: 0 None
  Sex: Male
  Weight: 2.5 kg

DRUGS (6)
  1. VIMPAT [Suspect]
     Indication: EPILEPSY
     Dosage: 300 MG/DAY
     Route: 064
     Dates: start: 20091026, end: 20100706
  2. APYDAN EXTENT [Suspect]
     Indication: EPILEPSY
     Dosage: 600 MG/DAY
     Route: 064
     Dates: start: 20091026, end: 200912
  3. TOPAMAX [Suspect]
     Indication: EPILEPSY
     Dosage: 200 MG/DAY
     Route: 064
     Dates: start: 20091026, end: 201001
  4. TOPAMAX [Suspect]
     Indication: EPILEPSY
     Dosage: 250 MG/DAY
     Route: 064
     Dates: start: 201001, end: 20100706
  5. DIAZEPAM [Concomitant]
     Indication: EPILEPSY
     Dosage: UNKNOWN
     Route: 064
     Dates: start: 20100306, end: 20100306
  6. FOLIC ACID [Concomitant]
     Indication: PROPHYLAXIS OF NEURAL TUBE DEFECT
     Dosage: 8 MG/DAY
     Route: 064
     Dates: start: 200912, end: 201001

REACTIONS (3)
  - Haemangioma congenital [Unknown]
  - Small for dates baby [Unknown]
  - Foetal exposure during pregnancy [Recovered/Resolved]
